FAERS Safety Report 5554889-3 (Version None)
Quarter: 2007Q4

REPORT INFORMATION
  Report Type: 
  Country: None (occurrence: None)
  Receive Date: 20071213
  Receipt Date: 20070806
  Transmission Date: 20080405
  Serious: No
  Sender: FDA-Public Use
  Company Number: US-AMGEN-KDL233353

PATIENT
  Sex: Female

DRUGS (5)
  1. ENBREL [Suspect]
     Indication: RHEUMATOID ARTHRITIS
     Route: 058
     Dates: start: 20070501
  2. SALSALATE [Suspect]
  3. METHOTREXATE [Concomitant]
     Route: 048
     Dates: start: 20060701
  4. FLEXERIL [Concomitant]
  5. DURAGESIC-100 [Concomitant]

REACTIONS (4)
  - RASH ERYTHEMATOUS [None]
  - RASH GENERALISED [None]
  - RASH PRURITIC [None]
  - SWELLING [None]
